FAERS Safety Report 16799621 (Version 1)
Quarter: 2019Q3

REPORT INFORMATION
  Report Type: Spontaneous
  Country: US (occurrence: US)
  Receive Date: 20190722
  Receipt Date: 20190722
  Transmission Date: 20191005
  Serious: No
  Sender: FDA-Public Use
  Company Number: None

PATIENT
  Age: 77 Year
  Sex: Female
  Weight: 72.57 kg

DRUGS (13)
  1. AMLODIPINE BESYLATE 2.5MG TAB GENERIC FOR NORVASC [Suspect]
     Active Substance: AMLODIPINE BESYLATE
     Indication: HYPERTENSION
     Dates: start: 20190312, end: 20190530
  2. NITROFURANTOIN. [Concomitant]
     Active Substance: NITROFURANTOIN
  3. LEVOTHYROXINE. [Concomitant]
     Active Substance: LEVOTHYROXINE
  4. WARFARIN [Concomitant]
     Active Substance: WARFARIN
  5. ASPIRIN. [Concomitant]
     Active Substance: ASPIRIN
  6. VITAMIN C [Concomitant]
     Active Substance: ASCORBIC ACID
  7. GABAPENTIN. [Concomitant]
     Active Substance: GABAPENTIN
  8. FLECAINIDE [Concomitant]
     Active Substance: FLECAINIDE
  9. VITAMIN D3 [Concomitant]
     Active Substance: CHOLECALCIFEROL
  10. METOPROLOL. [Concomitant]
     Active Substance: METOPROLOL
  11. EZETIMIBE. [Concomitant]
     Active Substance: EZETIMIBE
  12. VITAMIN B12 [Concomitant]
     Active Substance: CYANOCOBALAMIN
  13. CALCIUM [Concomitant]
     Active Substance: CALCIUM

REACTIONS (6)
  - Eructation [None]
  - Hypophagia [None]
  - Abdominal discomfort [None]
  - Nausea [None]
  - Taste disorder [None]
  - Weight decreased [None]

NARRATIVE: CASE EVENT DATE: 20190401
